FAERS Safety Report 5166867-7 (Version None)
Quarter: 2006Q4

REPORT INFORMATION
  Report Type: 
  Country: None (occurrence: None)
  Receive Date: 20061129
  Receipt Date: 20061116
  Transmission Date: 20070319
  Serious: Yes (Hospitalization, Other)
  Sender: FDA-Public Use
  Company Number: 2006143602

PATIENT
  Age: 95 Year
  Sex: Female

DRUGS (9)
  1. LYRICA [Suspect]
     Indication: PAIN IN EXTREMITY
     Dosage: 25 MG (25 MG, 1 IN 1 D), ORAL
     Route: 048
     Dates: start: 20060811, end: 20060816
  2. ASAPHEN (ACETYLSALICYCLIC ACID) [Concomitant]
  3. IMDUR [Concomitant]
  4. NORVASC [Concomitant]
  5. METOPROLOL TARTRATE [Concomitant]
  6. LOSEC (OMEPRAZOLE) [Concomitant]
  7. TYLENOL [Concomitant]
  8. ATIVAN [Concomitant]
  9. MOTILLIUM (DOMPERIDONE) [Concomitant]

REACTIONS (9)
  - BLOOD SODIUM DECREASED [None]
  - CONFUSIONAL STATE [None]
  - CONSTIPATION [None]
  - DEMENTIA ALZHEIMER'S TYPE [None]
  - DIARRHOEA [None]
  - FACE INJURY [None]
  - FALL [None]
  - RENAL FUNCTION TEST ABNORMAL [None]
  - SOMNOLENCE [None]
